FAERS Safety Report 6233360-X (Version None)
Quarter: 2009Q2

REPORT INFORMATION
  Report Type: 
  Country: None (occurrence: None)
  Receive Date: 20090612
  Receipt Date: 20090602
  Transmission Date: 20091009
  Serious: No
  Sender: FDA-Public Use
  Company Number: 090174

PATIENT
  Sex: Female
  Weight: 60.3284 kg

DRUGS (4)
  1. NULYTELY-FLAVORED [Suspect]
     Indication: COLONOSCOPY
     Dosage: 3 GLASSES/1X/PO
     Route: 048
     Dates: start: 20090531
  2. METOPROLOL TARTRATE [Concomitant]
  3. MAGNESIUM SULFATE [Concomitant]
  4. ESTRADIOL [Concomitant]

REACTIONS (7)
  - BLOOD PRESSURE INCREASED [None]
  - CONFUSIONAL STATE [None]
  - DISORIENTATION [None]
  - DYSPNOEA [None]
  - GAIT DISTURBANCE [None]
  - HYPOAESTHESIA [None]
  - TRANSIENT ISCHAEMIC ATTACK [None]
